APPROVED DRUG PRODUCT: SOLARAZE
Active Ingredient: DICLOFENAC SODIUM
Strength: 3% **Federal Register determination that product was not discontinued or withdrawn for safety or effectiveness reasons**
Dosage Form/Route: GEL;TOPICAL
Application: N021005 | Product #001
Applicant: FOUGERA PHARMACEUTICALS INC
Approved: Oct 16, 2000 | RLD: Yes | RS: No | Type: DISCN